FAERS Safety Report 8428931-6 (Version None)
Quarter: 2012Q2

REPORT INFORMATION
  Report Type: 
  Country: None (occurrence: None)
  Receive Date: 20120612
  Receipt Date: 20120605
  Transmission Date: 20120825
  Serious: Yes (Disabling)
  Sender: FDA-Public Use
  Company Number: FR-ASTELLAS-2011EU006317

PATIENT
  Sex: Male

DRUGS (7)
  1. PROGRAF [Suspect]
     Indication: RENAL TRANSPLANT
     Dosage: 2 MG, UNKNOWN/D
     Route: 048
  2. PROGRAF [Suspect]
     Dosage: 3 MG, UNKNOWN/D
     Route: 065
     Dates: start: 20100719
  3. PROGRAF [Suspect]
     Dosage: 3 MG, UNKNOWN/D
     Route: 065
     Dates: start: 20110713
  4. PROGRAF [Suspect]
     Dosage: 3 MG, UNKNOWN/D
     Route: 065
     Dates: start: 20110415
  5. CORTICOSTEROID NOS [Concomitant]
     Dosage: 5 MG, UNKNOWN/D
     Route: 065
  6. PROGRAF [Suspect]
     Dosage: 2 MG, UNKNOWN/D
     Route: 065
     Dates: start: 20110912
  7. PROGRAF [Suspect]
     Dosage: 3 MG, UNKNOWN/D
     Route: 065
     Dates: start: 20110704

REACTIONS (1)
  - ADVERSE DRUG REACTION [None]
